FAERS Safety Report 17923518 (Version 4)
Quarter: 2023Q2

REPORT INFORMATION
  Report Type: Spontaneous
  Country: US (occurrence: US)
  Receive Date: 20200622
  Receipt Date: 20230407
  Transmission Date: 20230721
  Serious: Yes (Other)
  Sender: FDA-Public Use
  Company Number: US-GILEAD-2020-0474046

PATIENT
  Sex: Male
  Weight: 65.76 kg

DRUGS (25)
  1. VIREAD [Suspect]
     Active Substance: TENOFOVIR DISOPROXIL FUMARATE
     Indication: HIV infection
     Dosage: UNK
     Route: 048
     Dates: start: 2007, end: 2009
  2. VIREAD [Suspect]
     Active Substance: TENOFOVIR DISOPROXIL FUMARATE
     Dosage: UNK
     Route: 048
     Dates: start: 200106, end: 2013
  3. ATRIPLA [Suspect]
     Active Substance: EFAVIRENZ\EMTRICITABINE\TENOFOVIR DISOPROXIL FUMARATE
     Indication: HIV infection
     Dosage: UNK
     Route: 048
     Dates: start: 2006, end: 2007
  4. APTIVUS [Concomitant]
     Active Substance: TIPRANAVIR
  5. EPIVIR [Concomitant]
     Active Substance: LAMIVUDINE
  6. EPZICOM [Concomitant]
     Active Substance: ABACAVIR SULFATE\LAMIVUDINE
  7. ISENTRESS [Concomitant]
     Active Substance: RALTEGRAVIR POTASSIUM
  8. LEXIVA [Concomitant]
     Active Substance: FOSAMPRENAVIR CALCIUM
  9. NORVIR [Concomitant]
     Active Substance: RITONAVIR
  10. ZIAGEN [Concomitant]
     Active Substance: ABACAVIR SULFATE
  11. VALTREX [Concomitant]
     Active Substance: VALACYCLOVIR HYDROCHLORIDE
  12. RISPERDAL [Concomitant]
     Active Substance: RISPERIDONE
  13. OMEPRAZOLE [Concomitant]
     Active Substance: OMEPRAZOLE
  14. MIRTAZAPINE [Concomitant]
     Active Substance: MIRTAZAPINE
  15. ETHAMBUTOL HYDROCHLORIDE [Concomitant]
     Active Substance: ETHAMBUTOL HYDROCHLORIDE
  16. CITALOPRAM [Concomitant]
     Active Substance: CITALOPRAM HYDROBROMIDE
  17. ATENOLOL [Concomitant]
     Active Substance: ATENOLOL
  18. SIMVASTATIN [Concomitant]
     Active Substance: SIMVASTATIN
  19. KLOR-CON [Concomitant]
     Active Substance: POTASSIUM CHLORIDE
  20. AMLODIPINE [Concomitant]
     Active Substance: AMLODIPINE BESYLATE
  21. FENTANYL CITRATE [Concomitant]
     Active Substance: FENTANYL CITRATE
  22. PENTOXIFYLLINE [Concomitant]
     Active Substance: PENTOXIFYLLINE
  23. CRESTOR [Concomitant]
     Active Substance: ROSUVASTATIN CALCIUM
  24. MULTIGEN PLUS [Concomitant]
  25. CANNABIS SATIVA SUBSP. INDICA TOP [Concomitant]
     Active Substance: CANNABIS SATIVA SUBSP. INDICA TOP

REACTIONS (8)
  - Chronic kidney disease [Not Recovered/Not Resolved]
  - Renal injury [Unknown]
  - Multiple fractures [Unknown]
  - Hand fracture [Recovered/Resolved]
  - Tooth loss [Unknown]
  - Bone density decreased [Not Recovered/Not Resolved]
  - Pain [Unknown]
  - Emotional distress [Unknown]

NARRATIVE: CASE EVENT DATE: 20030101
